FAERS Safety Report 11051487 (Version 2)
Quarter: 2015Q2

REPORT INFORMATION
  Report Type: Spontaneous
  Country: US (occurrence: US)
  Receive Date: 20150421
  Receipt Date: 20150611
  Transmission Date: 20150821
  Serious: No
  Sender: FDA-Public Use
  Company Number: US-009507513-1504USA018248

PATIENT
  Age: 40 Year
  Sex: Female
  Weight: 65.76 kg

DRUGS (1)
  1. GRASTEK [Suspect]
     Active Substance: PHLEUM PRATENSE POLLEN
     Dosage: 2800 BIOEQUIVALENT ALLERGY UNIT (BAU), FREQUENCY UNKNOWN
     Route: 060
     Dates: start: 20150414, end: 20150414

REACTIONS (3)
  - Oral pruritus [Recovered/Resolved]
  - Palpitations [Recovered/Resolved]
  - Chest discomfort [Recovered/Resolved]

NARRATIVE: CASE EVENT DATE: 20150414
